FAERS Safety Report 6487409-X (Version None)
Quarter: 2009Q4

REPORT INFORMATION
  Report Type: 
  Country: None (occurrence: None)
  Receive Date: 20091209
  Receipt Date: 20091209
  Transmission Date: 20100525
  Serious: Yes (Hospitalization)
  Sender: FDA-Public Use
  Company Number: None

PATIENT
  Sex: Female
  Weight: 93 kg

DRUGS (3)
  1. AVASTIN [Suspect]
     Indication: BREAST CANCER
     Dosage: 60MG/M2. 60MG/M2 Q 2 WKS X4 IV; 10MG/KG Q2WKS X 4 IV
     Route: 042
     Dates: start: 20090317, end: 20090609
  2. AVASTIN [Suspect]
     Indication: BREAST CANCER
     Dosage: 60MG/M2. 60MG/M2 Q 2 WKS X4 IV; 10MG/KG Q2WKS X 4 IV
     Route: 042
     Dates: start: 20090701, end: 20090728
  3. AVASTIN [Suspect]
     Indication: BREAST CANCER
     Dosage: 60MG/M2. 60MG/M2 Q 2 WKS X4 IV; 10MG/KG Q2WKS X 4 IV
     Route: 042
     Dates: start: 20090701, end: 20090811

REACTIONS (4)
  - NECROSIS ISCHAEMIC [None]
  - POST PROCEDURAL COMPLICATION [None]
  - SKIN FLAP NECROSIS [None]
  - WOUND DEHISCENCE [None]
